FAERS Safety Report 8121151-4 (Version None)
Quarter: 2012Q1

REPORT INFORMATION
  Report Type: 
  Country: None (occurrence: None)
  Receive Date: 20120208
  Receipt Date: 20120124
  Transmission Date: 20120608
  Serious: Yes (Hospitalization, Other)
  Sender: FDA-Public Use
  Company Number: DE-CELGENEUS-062-21880-11122230

PATIENT
  Age: 58 Year
  Sex: Female

DRUGS (14)
  1. MIRTAZAPINE [Concomitant]
     Route: 065
  2. PANTOPRAZOLE [Concomitant]
     Route: 065
  3. ACETYLSALICYLIC ACID SRT [Concomitant]
     Route: 065
  4. AMITRIPTYLINE HCL [Concomitant]
     Dosage: 25 MILLIGRAM
     Route: 065
  5. NOVALGIN [Concomitant]
     Route: 065
  6. LEVOTHYROXINE SODIUM [Concomitant]
     Route: 065
  7. MULTI-VITAMINS [Concomitant]
     Route: 065
  8. LORAZEPAM [Concomitant]
     Route: 065
  9. PROTHIPENDYL [Concomitant]
     Dosage: 80 MILLIGRAM
     Route: 065
  10. VENLAFAXINE HYDROCHLORIDE [Concomitant]
     Route: 065
  11. DICLOFENAC [Concomitant]
     Route: 065
  12. REVLIMID [Suspect]
     Dosage: 25 MILLIGRAM
     Route: 048
     Dates: start: 20110819
  13. REVLIMID [Suspect]
     Route: 048
     Dates: start: 20111212
  14. ZOLPIDEM [Concomitant]
     Route: 065

REACTIONS (1)
  - DEPRESSED MOOD [None]
